FAERS Safety Report 4588749-1 (Version None)
Quarter: 2005Q1

REPORT INFORMATION
  Report Type: 
  Country: None (occurrence: None)
  Receive Date: 20050222
  Receipt Date: 20050214
  Transmission Date: 20050727
  Serious: Yes (Other)
  Sender: FDA-Public Use
  Company Number: PHFR2005GB00889

PATIENT
  Age: 49 Year
  Sex: 0

DRUGS (6)
  1. CARBAMAZEPINE [Suspect]
     Indication: AFFECTIVE DISORDER
     Route: 048
     Dates: start: 20041201, end: 20041201
  2. OLANZAPINE [Concomitant]
     Indication: PSYCHOTIC DISORDER
     Dosage: 10MG/DAY
     Route: 048
  3. FLUOXETINE [Concomitant]
     Indication: DEPRESSION
     Dosage: 40MG/DAY
     Route: 048
  4. SIMVASTATIN [Concomitant]
     Indication: BLOOD CHOLESTEROL INCREASED
     Dosage: 20MG/DAY
     Route: 048
  5. HALOPERIDOL [Concomitant]
     Indication: PSYCHOTIC DISORDER
     Dosage: 10MG/DAY
     Route: 048
  6. LORAZEPAM [Concomitant]
     Route: 048

REACTIONS (1)
  - NIGHTMARE [None]
